FAERS Safety Report 6640633-5 (Version None)
Quarter: 2010Q1

REPORT INFORMATION
  Report Type: 
  Country: None (occurrence: None)
  Receive Date: 20100318
  Receipt Date: 20100305
  Transmission Date: 20100710
  Serious: Yes (Hospitalization, Other)
  Sender: FDA-Public Use
  Company Number: US-ELI_LILLY_AND_COMPANY-US200908005976

PATIENT
  Age: 59 Year
  Sex: Male
  Weight: 134.69 kg

DRUGS (19)
  1. BYETTA [Suspect]
     Dosage: 10 UG, 2/D
     Dates: start: 20060501, end: 20061001
  2. LASIX [Concomitant]
     Indication: CARDIAC FAILURE CONGESTIVE
     Dosage: 40 MG, 2/D
     Dates: start: 19990101
  3. NORVASC [Concomitant]
     Indication: HYPERTENSION
     Dates: start: 19990101
  4. LANTUS [Concomitant]
     Indication: TYPE 2 DIABETES MELLITUS
     Dosage: 16 U, EACH EVENING
     Dates: start: 20060101
  5. HUMALOG [Concomitant]
     Indication: TYPE 2 DIABETES MELLITUS
     Dosage: 15 U, 3/D
     Dates: start: 20060101
  6. ACTOS [Concomitant]
     Indication: TYPE 2 DIABETES MELLITUS
     Dosage: 45 MG, DAILY (1/D)
     Dates: start: 20000101
  7. LYRICA [Concomitant]
     Dosage: 75 MG, 2/D
  8. GLYBURIDE [Concomitant]
     Indication: TYPE 2 DIABETES MELLITUS
     Dosage: 2.5 MG, DAILY (1/D)
     Dates: start: 19970101
  9. METFORMIN HYDROCHLORIDE [Concomitant]
     Indication: TYPE 2 DIABETES MELLITUS
     Dosage: 1000 MG, 2/D
     Dates: start: 20020101
  10. ATENOLOL [Concomitant]
     Indication: HYPERTENSION
     Dosage: 25 MG, 2/D
     Dates: start: 20060101
  11. ZOCOR [Concomitant]
     Dosage: 10 MG, EACH EVENING
     Dates: start: 20060101
  12. ZAROXOLYN [Concomitant]
     Indication: HYPERTENSION
     Dosage: 5 MG, 2/D
     Dates: start: 20050101
  13. ZOLOFT [Concomitant]
     Indication: DEPRESSION
     Dosage: 50 MG, DAILY (1/D)
     Dates: start: 20070101
  14. INSULIN [Concomitant]
  15. PLAVIX [Concomitant]
     Dosage: 75 MG, DAILY (1/D)
  16. COUMADIN [Concomitant]
     Dosage: 7.5 MG, DAILY (1/D)
  17. POTASSIUM [Concomitant]
  18. NABUMETONE [Concomitant]
     Indication: ARTHRALGIA
     Dosage: 500 MG, DAILY (1/D)
  19. NIASPAN [Concomitant]
     Dosage: 500 MG, EACH EVENING

REACTIONS (2)
  - OFF LABEL USE [None]
  - PANCREATITIS ACUTE [None]
